FAERS Safety Report 7659940-2 (Version None)
Quarter: 2011Q3

REPORT INFORMATION
  Report Type: 
  Country: None (occurrence: None)
  Receive Date: 20110805
  Receipt Date: 20110802
  Transmission Date: 20111222
  Serious: Yes (Hospitalization, Congenital Anomaly, Other)
  Sender: FDA-Public Use
  Company Number: US-PFIZER INC-2011089809

PATIENT
  Sex: Male
  Weight: 3 kg

DRUGS (1)
  1. ZOLOFT [Suspect]
     Indication: DEPRESSION
     Dosage: 50 MG TABLET, DAILY
     Route: 064
     Dates: start: 20100101

REACTIONS (18)
  - AMBLYOPIA [None]
  - SEPSIS [None]
  - GASTROENTERITIS [None]
  - APNOEA [None]
  - POSITIONAL PLAGIOCEPHALY [None]
  - JAUNDICE [None]
  - LACTOSE INTOLERANCE [None]
  - TORTICOLLIS [None]
  - DEVELOPMENTAL DELAY [None]
  - GASTROOESOPHAGEAL REFLUX DISEASE [None]
  - OTITIS MEDIA [None]
  - INFLUENZA [None]
  - DEHYDRATION [None]
  - MATERNAL EXPOSURE DURING PREGNANCY [None]
  - HYPERTENSION [None]
  - UPPER RESPIRATORY TRACT INFECTION [None]
  - CYANOSIS [None]
  - BACK INJURY [None]
